FAERS Safety Report 16807471 (Version 1)
Quarter: 2019Q3

REPORT INFORMATION
  Report Type: Spontaneous
  Country: US (occurrence: US)
  Receive Date: 20190913
  Receipt Date: 20190913
  Transmission Date: 20191005
  Serious: No
  Sender: FDA-Public Use
  Company Number: US-JNJFOC-20190910251

PATIENT
  Sex: Male

DRUGS (11)
  1. ZYTIGA [Suspect]
     Active Substance: ABIRATERONE ACETATE
     Indication: PROSTATE CANCER
     Route: 048
  2. ASPIRIN                            /00002701/ [Concomitant]
     Active Substance: ASPIRIN
  3. ATORVASTATIN [Concomitant]
     Active Substance: ATORVASTATIN
  4. WARFARIN [Concomitant]
     Active Substance: WARFARIN
  5. BICALUTAMIDE. [Concomitant]
     Active Substance: BICALUTAMIDE
  6. PREDNISONE. [Concomitant]
     Active Substance: PREDNISONE
  7. LISINOPRIL. [Concomitant]
     Active Substance: LISINOPRIL
  8. XGEVA [Concomitant]
     Active Substance: DENOSUMAB
  9. FENOFIBRATE. [Concomitant]
     Active Substance: FENOFIBRATE
  10. ATENOLOL. [Concomitant]
     Active Substance: ATENOLOL
  11. CELEBREX [Concomitant]
     Active Substance: CELECOXIB

REACTIONS (1)
  - Diarrhoea [Unknown]
